FAERS Safety Report 5525666-4 (Version None)
Quarter: 2007Q4

REPORT INFORMATION
  Report Type: 
  Country: None (occurrence: None)
  Receive Date: 20071126
  Receipt Date: 20070330
  Transmission Date: 20080405
  Serious: Yes (Other)
  Sender: FDA-Public Use
  Company Number: US-ASTRAZENECA-2007UW01391

PATIENT
  Age: 24699 Day
  Sex: Male
  Weight: 88.6 kg

DRUGS (2)
  1. SEROQUEL [Suspect]
     Indication: DEPRESSION
     Dosage: 25 MG - 100 MG
     Route: 048
     Dates: start: 20040206
  2. ZYPREXA [Suspect]
     Indication: ANXIETY
     Dates: start: 20020101

REACTIONS (3)
  - RETINAL DETACHMENT [None]
  - TYPE 2 DIABETES MELLITUS [None]
  - WEIGHT INCREASED [None]
